FAERS Safety Report 4317907-6 (Version None)
Quarter: 2004Q1

REPORT INFORMATION
  Report Type: 
  Country: None (occurrence: None)
  Receive Date: 20040316
  Receipt Date: 20040223
  Transmission Date: 20041129
  Serious: Yes (Hospitalization)
  Sender: FDA-Public Use
  Company Number: JP-ROCHE-359574

PATIENT
  Age: 73 Year
  Sex: Male

DRUGS (8)
  1. PANALDINE [Suspect]
     Indication: PROPHYLAXIS
     Route: 048
     Dates: start: 20040131, end: 20040212
  2. MEVALOTIN [Suspect]
     Indication: DRUG USE FOR UNKNOWN INDICATION
     Route: 048
     Dates: start: 20040209, end: 20040212
  3. ASPIRIN [Concomitant]
     Route: 048
     Dates: start: 20040113
  4. AMLODIN [Concomitant]
     Route: 048
     Dates: start: 20040113
  5. ITOROL [Concomitant]
     Route: 048
     Dates: start: 20040113
  6. SIGMART [Concomitant]
     Route: 048
     Dates: start: 20040113
  7. GASTER [Concomitant]
     Route: 048
     Dates: start: 20040113
  8. SELBEX [Concomitant]
     Route: 048
     Dates: start: 20040113

REACTIONS (4)
  - CONJUNCTIVITIS [None]
  - ECZEMA [None]
  - ERYTHEMA MULTIFORME [None]
  - STOMATITIS [None]
